FAERS Safety Report 10873100 (Version 1)
Quarter: 2015Q1

REPORT INFORMATION
  Report Type: Report from Study
  Country: JP (occurrence: JP)
  Receive Date: 20150227
  Receipt Date: 20150227
  Transmission Date: 20150721
  Serious: Yes (Other)
  Sender: FDA-Public Use
  Company Number: JP-ROCHE-1290148

PATIENT

DRUGS (3)
  1. BEVACIZUMAB [Suspect]
     Active Substance: BEVACIZUMAB
     Indication: NON-SMALL CELL LUNG CANCER
     Dosage: ON DAY 1 EVERY 3 WEEKS FOR THREE TO SIX CYCLES AND FOLLOWED BY EVERY 3 WEEKS UNTIL DISEASE PROGRESSI
     Route: 042
  2. CARBOPLATIN. [Suspect]
     Active Substance: CARBOPLATIN
     Indication: NON-SMALL CELL LUNG CANCER
     Dosage: AUC=6/5 ON DAY 1 EVERY 3 WEEKS FOR THREE TO SIX CYCLES
     Route: 042
  3. PACLITAXEL. [Suspect]
     Active Substance: PACLITAXEL
     Indication: NON-SMALL CELL LUNG CANCER
     Dosage: ON DAY 1 EVERY 3 WEEKS FOR THREE TO SIX CYCLES
     Route: 042

REACTIONS (15)
  - Thrombocytopenia [Unknown]
  - Hypertension [Unknown]
  - Diarrhoea [Unknown]
  - Neutropenia [Unknown]
  - Anaemia [Unknown]
  - Dyspnoea [Unknown]
  - Febrile neutropenia [Recovered/Resolved]
  - Alanine aminotransferase increased [Unknown]
  - Mucosal inflammation [Unknown]
  - Stomatitis [Unknown]
  - Infection [Unknown]
  - Infusion related reaction [Unknown]
  - Leukopenia [Unknown]
  - Peripheral sensory neuropathy [Unknown]
  - Fatigue [Unknown]
